FAERS Safety Report 15555446 (Version 1)
Quarter: 2018Q4

REPORT INFORMATION
  Report Type: Spontaneous
  Country: JP (occurrence: JP)
  Receive Date: 20181026
  Receipt Date: 20181026
  Transmission Date: 20190205
  Serious: Yes (Other)
  Sender: FDA-Public Use
  Company Number: JP-MYLANLABS-2018M1079173

PATIENT
  Sex: Female

DRUGS (2)
  1. PACLITAXEL. [Suspect]
     Active Substance: PACLITAXEL
     Indication: CERVIX CARCINOMA
     Dosage: RECEIVED A TOTAL OF FOUR COURSES
     Route: 064
  2. CISPLATIN. [Suspect]
     Active Substance: CISPLATIN
     Indication: CERVIX CARCINOMA
     Dosage: RECEIVED A TOTAL OF FOUR COURSES
     Route: 064

REACTIONS (2)
  - Dermatitis exfoliative generalised [Recovering/Resolving]
  - Foetal exposure during delivery [Recovering/Resolving]
